FAERS Safety Report 21751610 (Version 2)
Quarter: 2023Q1

REPORT INFORMATION
  Report Type: Spontaneous
  Country: DK (occurrence: DK)
  Receive Date: 20221220
  Receipt Date: 20230102
  Transmission Date: 20230418
  Serious: Yes (Hospitalization)
  Sender: FDA-Public Use
  Company Number: None

PATIENT
  Age: 40 Year
  Sex: Female

DRUGS (2)
  1. KEPPRA [Suspect]
     Active Substance: LEVETIRACETAM
     Indication: Juvenile myoclonic epilepsy
     Dosage: STRENGTH AND DOSE: UNKNOWN. DOSE REDUCED 22APR-, 03MAY- AND 07JUL2021.
     Dates: end: 2021
  2. LAMICTAL [Suspect]
     Active Substance: LAMOTRIGINE
     Indication: Juvenile myoclonic epilepsy
     Dosage: STRENGTH AND DOSE UNKNOWN. DOSE INCREASED 03FEB2021

REACTIONS (5)
  - Mental disorder [Unknown]
  - Tremor [Unknown]
  - Suicide attempt [Recovered/Resolved]
  - Mood swings [Unknown]
  - Anxiety [Unknown]

NARRATIVE: CASE EVENT DATE: 20210101
